FAERS Safety Report 5154186-4 (Version None)
Quarter: 2006Q4

REPORT INFORMATION
  Report Type: 
  Country: None (occurrence: None)
  Receive Date: 20061120
  Receipt Date: 20061005
  Transmission Date: 20070319
  Serious: Yes (Hospitalization, Other)
  Sender: FDA-Public Use
  Company Number: US-BRISTOL-MYERS SQUIBB COMPANY-13531488

PATIENT
  Age: 77 Year
  Sex: Female
  Weight: 59 kg

DRUGS (10)
  1. SINEMET [Suspect]
     Indication: PARKINSON'S DISEASE
  2. SINEMET [Suspect]
     Route: 048
  3. SINEMET CR [Suspect]
     Indication: PARKINSON'S DISEASE
  4. LIPITOR [Concomitant]
  5. PLAVIX [Concomitant]
  6. FOLTX [Concomitant]
  7. VITAMIN D [Concomitant]
  8. CALCIUM [Concomitant]
  9. OMEGA 3 FISH OIL [Concomitant]
  10. CENTRUM SILVER [Concomitant]

REACTIONS (6)
  - APHASIA [None]
  - DRUG INEFFECTIVE [None]
  - DYSKINESIA [None]
  - DYSPNOEA [None]
  - EYE DISORDER [None]
  - OVERDOSE [None]
